FAERS Safety Report 9288377 (Version 1)
Quarter: 2013Q2

REPORT INFORMATION
  Report Type: Spontaneous
  Country: FR (occurrence: FR)
  Receive Date: 20130514
  Receipt Date: 20130514
  Transmission Date: 20140414
  Serious: Yes (Hospitalization)
  Sender: FDA-Public Use
  Company Number: FR-SANOFI-AVENTIS-2013SA045946

PATIENT
  Age: 69 Year
  Sex: Female

DRUGS (10)
  1. LOVENOX [Suspect]
     Indication: PRODUCT USED FOR UNKNOWN INDICATION
     Route: 058
     Dates: start: 20130320, end: 20130401
  2. PREVISCAN [Suspect]
     Indication: ATRIAL FIBRILLATION
     Dosage: STRENGTH: 20 MG
     Route: 048
     Dates: end: 20130320
  3. PREVISCAN [Suspect]
     Indication: ATRIAL FIBRILLATION
     Dosage: STRENGTH: 20 MG
     Route: 048
     Dates: start: 20130323, end: 20130403
  4. FLECAINE [Concomitant]
     Route: 048
  5. APROVEL [Concomitant]
     Route: 048
  6. PRAVASTATIN SODIUM [Concomitant]
     Route: 048
  7. INEXIUM [Concomitant]
     Route: 048
  8. CORDARONE [Concomitant]
     Route: 048
  9. LEVOTHYROX [Concomitant]
     Route: 048
  10. TARDYFERON [Concomitant]
     Route: 048

REACTIONS (4)
  - Cerebrovascular accident [Recovered/Resolved]
  - Motor dysfunction [Recovered/Resolved]
  - Monoparesis [Recovered/Resolved]
  - Drug ineffective [Unknown]
